FAERS Safety Report 6518294-5 (Version None)
Quarter: 2009Q4

REPORT INFORMATION
  Report Type: 
  Country: None (occurrence: None)
  Receive Date: 20091224
  Receipt Date: 20091215
  Transmission Date: 20100525
  Serious: Yes (Hospitalization)
  Sender: FDA-Public Use
  Company Number: FR-GENENTECH-294459

PATIENT
  Age: 5 Year
  Sex: Male

DRUGS (4)
  1. MABTHERA [Suspect]
     Indication: NEPHROTIC SYNDROME
     Dosage: 375 MG/M2, UNK
     Route: 042
     Dates: start: 20080801, end: 20091105
  2. CELLCEPT [Concomitant]
     Indication: NEPHROTIC SYNDROME
     Dosage: UNK
     Dates: start: 20071101
  3. NEORAL [Concomitant]
     Indication: NEPHROTIC SYNDROME
     Dosage: UNK
     Dates: start: 20070301
  4. BACTRIM [Concomitant]
     Indication: NEPHROTIC SYNDROME

REACTIONS (1)
  - DIARRHOEA [None]
